FAERS Safety Report 8156478-3 (Version None)
Quarter: 2012Q1

REPORT INFORMATION
  Report Type: 
  Country: None (occurrence: None)
  Receive Date: 20120222
  Receipt Date: 20120215
  Transmission Date: 20120608
  Serious: Yes (Other)
  Sender: FDA-Public Use
  Company Number: JP-PFIZER INC-2012041465

PATIENT
  Age: 61 Year
  Sex: Female

DRUGS (1)
  1. CORTRIL [Suspect]
     Dosage: UNK
     Route: 048
     Dates: start: 20050101

REACTIONS (1)
  - RENAL IMPAIRMENT [None]
